FAERS Safety Report 8906208 (Version 1)
Quarter: 2012Q4

REPORT INFORMATION
  Report Type: Spontaneous
  Country: US (occurrence: None)
  Receive Date: 20121112
  Receipt Date: 20121112
  Transmission Date: 20130627
  Serious: Yes (Other)
  Sender: FDA-Public Use
  Company Number: None

PATIENT
  Age: 64 Year
  Sex: Male
  Weight: 89.36 kg

DRUGS (2)
  1. NASONEX [Suspect]
     Indication: ALLERGY
     Dosage: 1 spray/nostril  2 times per day  Nasal
     Route: 045
     Dates: start: 20121015, end: 20121111
  2. AZELASTINE [Suspect]
     Indication: ALLERGY
     Dosage: 1 Spray/nostril  2 times per day  Nasal
     Route: 045
     Dates: start: 20120201, end: 20121109

REACTIONS (2)
  - Middle insomnia [None]
  - Abnormal dreams [None]
